FAERS Safety Report 7528299-3 (Version None)
Quarter: 2011Q2

REPORT INFORMATION
  Report Type: 
  Country: None (occurrence: None)
  Receive Date: 20110607
  Receipt Date: 20110126
  Transmission Date: 20111010
  Serious: No
  Sender: FDA-Public Use
  Company Number: US-ASTRAZENECA-2011SE04422

PATIENT
  Age: 49 Year
  Sex: Female
  Weight: 112.5 kg

DRUGS (2)
  1. PRILOSEC [Suspect]
     Route: 048
     Dates: start: 20060101
  2. NEXIUM [Concomitant]

REACTIONS (2)
  - ABDOMINAL DISTENSION [None]
  - ABDOMINAL PAIN UPPER [None]
